FAERS Safety Report 10521197 (Version 1)
Quarter: 2014Q4

REPORT INFORMATION
  Report Type: Spontaneous
  Country: FR (occurrence: FR)
  Receive Date: 20141016
  Receipt Date: 20141016
  Transmission Date: 20150528
  Serious: Yes (Hospitalization)
  Sender: FDA-Public Use
  Company Number: FR-BRISTOL-MYERS SQUIBB COMPANY-21498092

PATIENT
  Age: 88 Year
  Sex: Female

DRUGS (9)
  1. FENOFIBRATE. [Concomitant]
     Active Substance: FENOFIBRATE
  2. TANGANIL [Concomitant]
     Active Substance: ACETYLLEUCINE
  3. RAMIPRIL. [Concomitant]
     Active Substance: RAMIPRIL
  4. ZALDIAR [Concomitant]
     Active Substance: ACETAMINOPHEN\TRAMADOL HYDROCHLORIDE
  5. LEVOTHYROX [Concomitant]
     Active Substance: LEVOTHYROXINE
  6. CIPRALAN [Concomitant]
     Active Substance: CIFENLINE SUCCINATE
  7. COUMADIN [Suspect]
     Active Substance: WARFARIN SODIUM
     Dosage: UNTIL 23JUL14.
     Route: 048
  8. STILNOX [Concomitant]
     Active Substance: ZOLPIDEM TARTRATE
  9. LASILIX [Concomitant]
     Active Substance: FUROSEMIDE

REACTIONS (5)
  - Haematoma [Recovered/Resolved]
  - International normalised ratio increased [Unknown]
  - Overdose [Unknown]
  - Rhabdomyolysis [Unknown]
  - Acute kidney injury [Unknown]

NARRATIVE: CASE EVENT DATE: 20140723
